FAERS Safety Report 10157694 (Version 1)
Quarter: 2014Q2

REPORT INFORMATION
  Report Type: Spontaneous
  Country: SE (occurrence: SE)
  Receive Date: 20140507
  Receipt Date: 20140507
  Transmission Date: 20141212
  Serious: Yes (Hospitalization, Other)
  Sender: FDA-Public Use
  Company Number: SE-ABBVIE-14P-150-1234733-00

PATIENT
  Age: 23 Year
  Sex: Female

DRUGS (19)
  1. VALPROIC ACID [Suspect]
     Indication: PRODUCT USED FOR UNKNOWN INDICATION
  2. ALIMEMAZINE TARTRATE [Suspect]
     Indication: PRODUCT USED FOR UNKNOWN INDICATION
  3. PROPIOMAZINE MALEATE [Suspect]
     Indication: PRODUCT USED FOR UNKNOWN INDICATION
  4. LEVOMEPROMAZINE [Suspect]
     Indication: PRODUCT USED FOR UNKNOWN INDICATION
  5. LITHIONIT [Suspect]
     Indication: PRODUCT USED FOR UNKNOWN INDICATION
  6. OXASCAND [Suspect]
     Indication: PRODUCT USED FOR UNKNOWN INDICATION
  7. FLUOXETINE [Suspect]
     Indication: ANXIETY
  8. HEMINEVRIN [Suspect]
     Indication: PRODUCT USED FOR UNKNOWN INDICATION
  9. AKINETON [Suspect]
     Indication: PRODUCT USED FOR UNKNOWN INDICATION
  10. IMOVANE [Suspect]
     Indication: PRODUCT USED FOR UNKNOWN INDICATION
  11. STESOLID [Suspect]
     Indication: PRODUCT USED FOR UNKNOWN INDICATION
  12. SOBRIL [Suspect]
     Indication: PRODUCT USED FOR UNKNOWN INDICATION
  13. INVEGA [Suspect]
     Indication: PRODUCT USED FOR UNKNOWN INDICATION
  14. PARGITAN [Suspect]
     Indication: PRODUCT USED FOR UNKNOWN INDICATION
  15. OMEPRAZOLE [Suspect]
     Indication: PRODUCT USED FOR UNKNOWN INDICATION
  16. QUETIAPINE [Suspect]
     Indication: PRODUCT USED FOR UNKNOWN INDICATION
  17. ATARAX [Suspect]
     Indication: PRODUCT USED FOR UNKNOWN INDICATION
  18. CETIRIZINE [Suspect]
     Indication: PRODUCT USED FOR UNKNOWN INDICATION
  19. TOPIRAMATE [Suspect]
     Indication: PRODUCT USED FOR UNKNOWN INDICATION

REACTIONS (20)
  - Genital neoplasm malignant female [Not Recovered/Not Resolved]
  - Galactorrhoea [Not Recovered/Not Resolved]
  - Amenorrhoea [Not Recovered/Not Resolved]
  - Ovarian germ cell cancer stage II [Not Recovered/Not Resolved]
  - Muscular weakness [Not Recovered/Not Resolved]
  - Dyspnoea [Not Recovered/Not Resolved]
  - Blood prolactin increased [Not Recovered/Not Resolved]
  - Palpitations [Not Recovered/Not Resolved]
  - Dyskinesia [Not Recovered/Not Resolved]
  - Hyperhidrosis [Not Recovered/Not Resolved]
  - Dysuria [Not Recovered/Not Resolved]
  - Swelling [Not Recovered/Not Resolved]
  - Muscle spasms [Not Recovered/Not Resolved]
  - Breast enlargement [Not Recovered/Not Resolved]
  - Fatigue [Not Recovered/Not Resolved]
  - Weight increased [Not Recovered/Not Resolved]
  - Tremor [Not Recovered/Not Resolved]
  - Aggression [Not Recovered/Not Resolved]
  - Abdominal pain [Not Recovered/Not Resolved]
  - Agitation [Not Recovered/Not Resolved]
